FAERS Safety Report 8542145-0 (Version None)
Quarter: 2012Q3

REPORT INFORMATION
  Report Type: 
  Country: None (occurrence: None)
  Receive Date: 20120726
  Receipt Date: 20111014
  Transmission Date: 20120928
  Serious: No
  Sender: FDA-Public Use
  Company Number: US-ASTRAZENECA-2011SE62266

PATIENT

DRUGS (6)
  1. CELEXA [Concomitant]
  2. CLONIPINE [Concomitant]
  3. SEROQUEL XR [Suspect]
     Indication: BIPOLAR II DISORDER
     Route: 048
     Dates: start: 20090101, end: 20100101
  4. SEROQUEL XR [Suspect]
     Route: 048
     Dates: start: 20110101
  5. BUSTAR [Concomitant]
  6. TRAZIDONE [Concomitant]

REACTIONS (1)
  - ALOPECIA [None]
